FAERS Safety Report 6967053-8 (Version None)
Quarter: 2010Q3

REPORT INFORMATION
  Report Type: 
  Country: None (occurrence: None)
  Receive Date: 20100907
  Receipt Date: 20100823
  Transmission Date: 20110219
  Serious: Yes (Hospitalization)
  Sender: FDA-Public Use
  Company Number: US-BAYER-201025298NA

PATIENT
  Age: 46 Year
  Sex: Female

DRUGS (3)
  1. YASMIN [Suspect]
     Indication: OVARIAN DISORDER
     Route: 048
     Dates: start: 20061201, end: 20070601
  2. SYNTHROID [Concomitant]
     Route: 065
     Dates: start: 19970101
  3. ANTIBIOTICS [Concomitant]
     Route: 065

REACTIONS (4)
  - DISCOMFORT [None]
  - FLANK PAIN [None]
  - PLEURITIC PAIN [None]
  - PULMONARY EMBOLISM [None]
